FAERS Safety Report 4855800-0 (Version None)
Quarter: 2005Q4

REPORT INFORMATION
  Report Type: 
  Country: None (occurrence: None)
  Receive Date: 20051215
  Receipt Date: 20051215
  Transmission Date: 20060501
  Serious: Yes (Life-Threatening)
  Sender: FDA-Public Use
  Company Number: None

PATIENT
  Age: 67 Year
  Sex: Female

DRUGS (2)
  1. MIDAZOLAM HYDROCHLORIDE [Suspect]
     Indication: COLONOSCOPY
     Dosage: 2 MG IV BOLUS
     Route: 040
     Dates: start: 20050622, end: 20050622
  2. MEPERIDINE [Suspect]
     Indication: COLONOSCOPY
     Dosage: 75 MG IV BOLUS
     Route: 042
     Dates: start: 20050622, end: 20050622

REACTIONS (1)
  - BRADYCARDIA [None]
